FAERS Safety Report 8464406-6 (Version None)
Quarter: 2012Q2

REPORT INFORMATION
  Report Type: 
  Country: None (occurrence: None)
  Receive Date: 20120626
  Receipt Date: 20120618
  Transmission Date: 20120825
  Serious: Yes (Hospitalization)
  Sender: FDA-Public Use
  Company Number: US-BIOGENIDEC-2010BI013980

PATIENT
  Age: 39 Year
  Sex: Male

DRUGS (13)
  1. VITAMIN D [Concomitant]
  2. VITAMIN D [Concomitant]
  3. ZANAFLEX [Concomitant]
     Route: 048
  4. CLONAZEPAM [Concomitant]
  5. LEXAPRO [Concomitant]
  6. TYSABRI [Suspect]
     Indication: MULTIPLE SCLEROSIS
     Route: 042
     Dates: start: 20071001, end: 20100318
  7. CLONAZEPAM [Concomitant]
  8. FLOMAX [Concomitant]
     Route: 048
  9. DALFAMPRIDINE [Concomitant]
  10. PROVIGIL [Concomitant]
     Route: 048
  11. CALCIUM [Concomitant]
  12. LAMISIL [Concomitant]
  13. AMBIEN [Concomitant]

REACTIONS (5)
  - PROGRESSIVE MULTIFOCAL LEUKOENCEPHALOPATHY [None]
  - CANDIDIASIS [None]
  - ATRIAL FIBRILLATION [None]
  - PNEUMONITIS [None]
  - CLOSTRIDIUM DIFFICILE COLITIS [None]
